FAERS Safety Report 5878336-7 (Version None)
Quarter: 2008Q3

REPORT INFORMATION
  Report Type: 
  Country: None (occurrence: None)
  Receive Date: 20080911
  Receipt Date: 20080902
  Transmission Date: 20090109
  Serious: Yes (Other)
  Sender: FDA-Public Use
  Company Number: US-PFIZER INC-2008056516

PATIENT
  Sex: Male
  Weight: 77.1 kg

DRUGS (5)
  1. CHANTIX [Suspect]
     Indication: SMOKING CESSATION THERAPY
     Dates: start: 20080501
  2. PLAVIX [Concomitant]
  3. ACETYLSALICYLIC ACID SRT [Concomitant]
  4. VYTORIN [Concomitant]
  5. CARDIAC THERAPY [Concomitant]

REACTIONS (3)
  - DECREASED INTEREST [None]
  - DEPRESSION [None]
  - SUICIDAL IDEATION [None]
